FAERS Safety Report 8034207-1 (Version None)
Quarter: 2012Q1

REPORT INFORMATION
  Report Type: 
  Country: None (occurrence: None)
  Receive Date: 20120110
  Receipt Date: 20120106
  Transmission Date: 20120608
  Serious: Yes (Hospitalization, Other)
  Sender: FDA-Public Use
  Company Number: BR-ROCHE-725161

PATIENT
  Sex: Female
  Weight: 55 kg

DRUGS (16)
  1. LOSARTAN POTASSIUM [Concomitant]
  2. ALDACTONE [Concomitant]
  3. PRELONE [Concomitant]
  4. CHLOROQUINE [Concomitant]
  5. BONIVA [Concomitant]
  6. CORTISONE ACETATE [Concomitant]
  7. CENTRUM [Concomitant]
  8. SYNTHROID [Concomitant]
     Indication: HYPOTHYROIDISM
  9. OS-CAL [Concomitant]
  10. AMIODARONE HYDROCHLORIDE [Concomitant]
  11. VITAMIN C [Concomitant]
     Dosage: DRUG REPORTED AS C VITAMIN
  12. NEXIUM [Concomitant]
  13. FLUDROCORTISONE ACETATE [Concomitant]
     Dosage: MAGISTRAL MEDICATION
  14. VENLAFAXINE [Concomitant]
  15. MABTHERA [Suspect]
     Indication: RHEUMATOID ARTHRITIS
     Dosage: ROUTE: ENDOVENOUS; DOSE: 100 MG/10ML, FORM INFUSION
     Route: 050
     Dates: start: 20071215, end: 20071230
  16. CALCIUM ACETATE [Concomitant]

REACTIONS (18)
  - DYSARTHRIA [None]
  - MALAISE [None]
  - PNEUMONIA [None]
  - ARTHRITIS [None]
  - GENERALISED OEDEMA [None]
  - HYPOTHYROIDISM [None]
  - DIZZINESS [None]
  - OEDEMA PERIPHERAL [None]
  - BLOOD POTASSIUM DECREASED [None]
  - FALL [None]
  - COMA [None]
  - PAIN [None]
  - HYPERTENSION [None]
  - PAIN IN EXTREMITY [None]
  - OXYGEN SATURATION DECREASED [None]
  - BLOOD SODIUM DECREASED [None]
  - ERYTHEMA [None]
  - SPINAL DISORDER [None]
